FAERS Safety Report 7789215-2 (Version None)
Quarter: 2011Q3

REPORT INFORMATION
  Report Type: 
  Country: None (occurrence: None)
  Receive Date: 20110930
  Receipt Date: 20110923
  Transmission Date: 20111222
  Serious: Yes (Other)
  Sender: FDA-Public Use
  Company Number: US-AMGEN-USASP2011049339

PATIENT
  Age: 53 Year
  Sex: Female

DRUGS (1)
  1. ENBREL [Suspect]
     Indication: RHEUMATOID ARTHRITIS
     Dosage: 50 MG, QWK
     Dates: start: 20030801

REACTIONS (11)
  - DIZZINESS [None]
  - MITRAL VALVE PROLAPSE [None]
  - PALPITATIONS [None]
  - INJECTION SITE ERYTHEMA [None]
  - DYSPNOEA [None]
  - INJECTION SITE INDURATION [None]
  - INJECTION SITE PRURITUS [None]
  - PRESYNCOPE [None]
  - INJECTION SITE SWELLING [None]
  - HYPERTENSION [None]
  - ARTERIAL DISORDER [None]
